FAERS Safety Report 17871482 (Version 2)
Quarter: 2020Q2

REPORT INFORMATION
  Report Type: Report from Study
  Country: CA (occurrence: CA)
  Receive Date: 20200608
  Receipt Date: 20200612
  Transmission Date: 20200714
  Serious: Yes (Hospitalization)
  Sender: FDA-Public Use
  Company Number: CA-TAKEDA-2020TUS008039

PATIENT
  Age: 85 Year
  Sex: Female

DRUGS (3)
  1. PREDNISONE. [Concomitant]
     Active Substance: PREDNISONE
     Dosage: UNK
     Dates: start: 20191218
  2. VEDOLIZUMAB [Suspect]
     Active Substance: VEDOLIZUMAB
     Indication: CROHN^S DISEASE
     Dosage: 300 MILLIGRAM
     Route: 042
     Dates: start: 20200128
  3. VEDOLIZUMAB [Suspect]
     Active Substance: VEDOLIZUMAB
     Dosage: 300 MILLIGRAM
     Route: 042
     Dates: end: 20200508

REACTIONS (20)
  - Malaise [Not Recovered/Not Resolved]
  - Cardiac disorder [Unknown]
  - Blood pressure increased [Unknown]
  - Heart rate increased [Unknown]
  - Drug ineffective [Unknown]
  - Somnolence [Unknown]
  - Secretion discharge [Not Recovered/Not Resolved]
  - Eye swelling [Unknown]
  - Loss of consciousness [Unknown]
  - Decreased appetite [Unknown]
  - Vision blurred [Recovering/Resolving]
  - Insomnia [Unknown]
  - Feeling abnormal [Unknown]
  - Dyspepsia [Unknown]
  - Hypophagia [Not Recovered/Not Resolved]
  - Irritable bowel syndrome [Unknown]
  - Headache [Unknown]
  - Dizziness [Not Recovered/Not Resolved]
  - Ocular discomfort [Not Recovered/Not Resolved]
  - Peripheral swelling [Unknown]

NARRATIVE: CASE EVENT DATE: 20200203
